FAERS Safety Report 19454535 (Version 1)
Quarter: 2021Q2

REPORT INFORMATION
  Report Type: Report from Study
  Country: BR (occurrence: BR)
  Receive Date: 20210623
  Receipt Date: 20210623
  Transmission Date: 20210717
  Serious: Yes (Other)
  Sender: FDA-Public Use
  Company Number: NVSC2021BR122591

PATIENT
  Age: 28 Year
  Sex: Male
  Weight: 70 kg

DRUGS (2)
  1. COSENTYX [Suspect]
     Active Substance: SECUKINUMAB
     Indication: PSORIATIC ARTHROPATHY
     Dosage: 300 MG, QMO (2 PENS)
     Route: 065
  2. COSENTYX [Suspect]
     Active Substance: SECUKINUMAB
     Indication: ANKYLOSING SPONDYLITIS
     Dosage: 150 MG, QMO (1 PEN)
     Route: 065
     Dates: start: 201808, end: 20190820

REACTIONS (4)
  - Psoriatic arthropathy [Not Recovered/Not Resolved]
  - Rash [Recovered/Resolved]
  - Skin lesion [Recovered/Resolved]
  - Drug ineffective [Unknown]

NARRATIVE: CASE EVENT DATE: 201907
